FAERS Safety Report 4393400-X (Version None)
Quarter: 2004Q3

REPORT INFORMATION
  Report Type: 
  Country: None (occurrence: None)
  Receive Date: 20040701
  Receipt Date: 20040611
  Transmission Date: 20050211
  Serious: Yes (Hospitalization, Other)
  Sender: FDA-Public Use
  Company Number: US_0404102330

PATIENT
  Age: 78 Year
  Sex: Male

DRUGS (9)
  1. CECLOR [Suspect]
     Indication: INFECTION PROPHYLAXIS
     Dosage: 250 MG/1 DAY
     Dates: start: 20040205, end: 20040205
  2. WARFARIN SODIUM [Concomitant]
  3. EUGLUCON (GLIBENCLAMIDE) [Concomitant]
  4. CARVEDILOL [Concomitant]
  5. PANALDINE (TICLOPIDINE HYDROCHLORIDE) [Concomitant]
  6. COVERSYL (PERINDOPRIL) [Concomitant]
  7. AMIODARONE HCL [Concomitant]
  8. PARIET (RABEPRAZOLE SODIUM) [Concomitant]
  9. LASIX [Concomitant]

REACTIONS (10)
  - ANAPHYLACTIC SHOCK [None]
  - BLOOD PRESSURE DECREASED [None]
  - CARDIAC OUTPUT DECREASED [None]
  - COLD SWEAT [None]
  - DYSPHORIA [None]
  - ELECTROCARDIOGRAM ST SEGMENT ELEVATION [None]
  - GENERAL PHYSICAL HEALTH DETERIORATION [None]
  - HEPATIC FUNCTION ABNORMAL [None]
  - OXYGEN SATURATION DECREASED [None]
  - PALLOR [None]
